FAERS Safety Report 6386799-6 (Version None)
Quarter: 2009Q4

REPORT INFORMATION
  Report Type: 
  Country: None (occurrence: None)
  Receive Date: 20091002
  Receipt Date: 20090924
  Transmission Date: 20100525
  Serious: Yes (Other)
  Sender: FDA-Public Use
  Company Number: B0587935A

PATIENT
  Sex: Female

DRUGS (1)
  1. MALARONE [Suspect]
     Indication: MALARIA PROPHYLAXIS
     Dosage: 1TAB IN THE MORNING
     Route: 048
     Dates: start: 20090701

REACTIONS (2)
  - CUTANEOUS VASCULITIS [None]
  - OEDEMA PERIPHERAL [None]
